FAERS Safety Report 7475517-6 (Version None)
Quarter: 2011Q2

REPORT INFORMATION
  Report Type: 
  Country: None (occurrence: None)
  Receive Date: 20110512
  Receipt Date: 20110511
  Transmission Date: 20111010
  Serious: Yes (Death)
  Sender: FDA-Public Use
  Company Number: PHHY2010MX52066

PATIENT
  Sex: Male

DRUGS (1)
  1. EXFORGE [Suspect]
     Indication: HYPERTENSION
     Dosage: 1 TABLET (160/5MG) PER DAY
     Dates: start: 20080301

REACTIONS (8)
  - MYOCARDIAL INFARCTION [None]
  - CEREBRAL ARTERY EMBOLISM [None]
  - ARRHYTHMIA [None]
  - DYSPNOEA [None]
  - EMPHYSEMA [None]
  - RESPIRATORY ARREST [None]
  - ARTERIOSCLEROSIS [None]
  - GAIT DISTURBANCE [None]
